FAERS Safety Report 7829983-4 (Version None)
Quarter: 2011Q4

REPORT INFORMATION
  Report Type: 
  Country: None (occurrence: None)
  Receive Date: 20111021
  Receipt Date: 20111003
  Transmission Date: 20120403
  Serious: Yes (Hospitalization)
  Sender: FDA-Public Use
  Company Number: US-BAYER-2010-005845

PATIENT
  Age: 25 Year
  Sex: Female
  Weight: 113 kg

DRUGS (26)
  1. YASMIN [Suspect]
     Indication: POLYCYSTIC OVARIES
  2. ALDACTONE [Concomitant]
     Indication: POLYCYSTIC OVARIES
     Dosage: UNK
     Dates: start: 20031001
  3. VITAMIN A [Concomitant]
     Dosage: UNK
     Dates: start: 20031001
  4. BIOTIN [Concomitant]
     Dosage: UNK
     Dates: start: 20031001
  5. VITAMIN B-12 [Concomitant]
  6. GLUCOPHAGE [Concomitant]
     Indication: POLYCYSTIC OVARIES
     Dosage: 100 MG, BID
     Route: 048
     Dates: start: 20070501
  7. HYDROCODONE BITARTRATE [Concomitant]
     Dosage: 0.1 MG, UNK
     Route: 048
     Dates: start: 20070404
  8. SPIRONOLACTONE [Concomitant]
     Indication: POLYCYSTIC OVARIES
     Dosage: 100 MG, BID
     Route: 048
     Dates: start: 20070501
  9. MEPROZINE [Concomitant]
     Dosage: UNK
     Route: 048
     Dates: start: 20070510
  10. LEVAQUIN [Concomitant]
     Dosage: 500 MG, UNK
     Route: 048
     Dates: start: 20070503
  11. METFORMIN HCL [Concomitant]
     Dosage: 1000 MG, UNK
     Route: 048
     Dates: start: 20070410
  12. YASMIN [Suspect]
  13. FEXOFENADINE [Concomitant]
     Dosage: UNK
     Dates: start: 20070401, end: 20070501
  14. LAMICTAL [Concomitant]
     Dosage: UNK
     Dates: start: 20070401, end: 20070501
  15. YASMIN [Suspect]
     Indication: PREMENSTRUAL SYNDROME
     Dosage: UNK
     Dates: start: 20060101
  16. DROSPIRENONE AND ETHINYL ESTRADIOL [Suspect]
     Indication: POLYCYSTIC OVARIES
  17. MULTIVITAMIN PREPARATION + MINERAL SUPPLEMENT [Concomitant]
     Dosage: UNK
     Dates: start: 20031001
  18. VITAMIN D [Concomitant]
     Dosage: UNK
     Dates: start: 20031001
  19. PROMETHAZINE [Concomitant]
     Dosage: 25 MG, UNK
     Route: 048
     Dates: start: 20070403
  20. DROSPIRENONE AND ETHINYL ESTRADIOL [Suspect]
     Indication: PREMENSTRUAL SYNDROME
     Dosage: UNK
     Dates: start: 20080101, end: 20100101
  21. ASCORBIC ACID [Concomitant]
     Dosage: UNK
     Dates: start: 20031001
  22. ALLEGRA [Concomitant]
     Indication: HYPERSENSITIVITY
     Dosage: DAILY DOSE 80 MG
     Route: 048
     Dates: start: 20070501
  23. PHENERGAN HCL [Concomitant]
     Indication: NAUSEA
     Dosage: UNK
     Dates: start: 20070501
  24. METHYLPREDNISOLONE [Concomitant]
     Dosage: 4 MG, UNK
     Route: 048
     Dates: start: 20070404
  25. DROSPIRENONE AND ETHINYL ESTRADIOL [Suspect]
  26. UNKNOWN DRUG [Concomitant]
     Indication: ATTENTION DEFICIT/HYPERACTIVITY DISORDER
     Dosage: UNK
     Dates: start: 20030101

REACTIONS (14)
  - PAIN [None]
  - GALLBLADDER CHOLESTEROLOSIS [None]
  - ABDOMINAL PAIN [None]
  - DEPRESSION [None]
  - ANXIETY [None]
  - VOMITING [None]
  - GASTROINTESTINAL PAIN [None]
  - GASTRIC DISORDER [None]
  - CHOLECYSTITIS CHRONIC [None]
  - ANGER [None]
  - DISABILITY [None]
  - CHOLELITHIASIS [None]
  - INJURY [None]
  - EMOTIONAL DISTRESS [None]
